FAERS Safety Report 5465453-9 (Version None)
Quarter: 2007Q3

REPORT INFORMATION
  Report Type: 
  Country: None (occurrence: None)
  Receive Date: 20070920
  Receipt Date: 20070913
  Transmission Date: 20080115
  Serious: Yes (Other)
  Sender: FDA-Public Use
  Company Number: 2007-03624

PATIENT
  Age: 36 Year
  Sex: Female

DRUGS (1)
  1. FERRLECIT [Suspect]
     Indication: IRON DEFICIENCY ANAEMIA
     Dosage: 250 MG/100ML NS OVER 2 HRS, INTRAVENOUS
     Route: 042
     Dates: start: 20070417, end: 20070417

REACTIONS (6)
  - ANAPHYLACTIC REACTION [None]
  - COORDINATION ABNORMAL [None]
  - FATIGUE [None]
  - HEADACHE [None]
  - MEMORY IMPAIRMENT [None]
  - SPEECH DISORDER [None]
